FAERS Safety Report 24535318 (Version 1)
Quarter: 2024Q4

REPORT INFORMATION
  Report Type: Report from Study
  Country: US (occurrence: US)
  Receive Date: 20241022
  Receipt Date: 20241022
  Transmission Date: 20250114
  Serious: Yes (Other)
  Sender: JAZZ
  Company Number: US-JAZZ PHARMACEUTICALS-2023-US-020977

PATIENT
  Age: 32 Year
  Sex: Female

DRUGS (10)
  1. XYWAV [Suspect]
     Active Substance: CALCIUM OXYBATE\MAGNESIUM OXYBATE\POTASSIUM OXYBATE\SODIUM OXYBATE
     Indication: Narcolepsy
     Dosage: UNK
  2. XYWAV [Suspect]
     Active Substance: CALCIUM OXYBATE\MAGNESIUM OXYBATE\POTASSIUM OXYBATE\SODIUM OXYBATE
     Indication: Cataplexy
  3. XYWAV [Suspect]
     Active Substance: CALCIUM OXYBATE\MAGNESIUM OXYBATE\POTASSIUM OXYBATE\SODIUM OXYBATE
     Indication: Somnolence
  4. CELECOXIB [Concomitant]
     Active Substance: CELECOXIB
     Dosage: UNK UNK, QD
     Dates: start: 20160121
  5. LORAZEPAM [Concomitant]
     Active Substance: LORAZEPAM
     Dosage: 0000
     Dates: start: 20230901
  6. KLONOPIN [Concomitant]
     Active Substance: CLONAZEPAM
  7. MESALAMINE [Concomitant]
     Active Substance: MESALAMINE
     Dosage: TABLET
  8. MESALAMINE [Concomitant]
     Active Substance: MESALAMINE
     Dosage: ENEMA
  9. EFFEXOR [Concomitant]
     Active Substance: VENLAFAXINE HYDROCHLORIDE
     Dosage: UNK
     Dates: start: 20240722
  10. PROPRANOLOL [Concomitant]
     Active Substance: PROPRANOLOL HYDROCHLORIDE
     Dosage: UNK
     Dates: start: 20240501

REACTIONS (3)
  - Colitis ulcerative [Unknown]
  - Illness [Unknown]
  - Product administration interrupted [Unknown]

NARRATIVE: CASE EVENT DATE: 20231101
